FAERS Safety Report 6474354 (Version 1)
Quarter: 2020Q3

REPORT INFORMATION
  Report Type: Report from Study
  Country: BE (occurrence: BE)
  Receive Date: 20071126
  Receipt Date: 20071126
  Transmission Date: 20201104
  Serious: Yes (Hospitalization)
  Sender: FDA-Public Use
  Company Number: BE-ROCHE-526795

PATIENT
  Age: 58 Year
  Sex: Male
  Weight: 57 kg

DRUGS (6)
  1. SPIRIVA [Suspect]
     Active Substance: TIOTROPIUM BROMIDE MONOHYDRATE
     Route: 055
  2. UNSPECIFIED INGREDIENT [Suspect]
     Active Substance: UNSPECIFIED INGREDIENT
     Indication: EMPHYSEMA
     Route: 048
     Dates: start: 20061005, end: 20071003
  3. IPRATROPIUM BROMIDE\FENOTEROL HYDROBROMIDE [Concomitant]
     Active Substance: FENOTEROL HYDROBROMIDE\IPRATROPIUM BROMIDE
     Dosage: DOSE REPORTED AS 80/300 MCG
  4. LORMETAZEPAM [Concomitant]
     Active Substance: LORMETAZEPAM
  5. SERETIDE [Suspect]
     Active Substance: FLUTICASONE PROPIONATE\SALMETEROL XINAFOATE
     Dosage: DRUG NAME: SERETIDE DISCUS. DOSE REPORTED AS100/1000 MCG
  6. PULMICORT FLEXHALER [Suspect]
     Active Substance: BUDESONIDE
     Dosage: DRUG NAME: PULMICORT TH.

REACTIONS (1)
  - Renal neoplasm [Recovered/Resolved with Sequelae]

NARRATIVE: CASE EVENT DATE: 20071015
